FAERS Safety Report 7800269-7 (Version None)
Quarter: 2011Q4

REPORT INFORMATION
  Report Type: 
  Country: None (occurrence: None)
  Receive Date: 20111006
  Receipt Date: 20111005
  Transmission Date: 20120403
  Serious: Yes (Hospitalization)
  Sender: FDA-Public Use
  Company Number: US-GLAXOSMITHKLINE-A0947577A

PATIENT
  Age: 41 Year
  Sex: Female
  Weight: 35.9 kg

DRUGS (2)
  1. CETUXIMAB [Suspect]
     Indication: LUNG NEOPLASM MALIGNANT
     Dosage: 455MG WEEKLY
     Route: 042
     Dates: start: 20110823
  2. LAPATINIB [Suspect]
     Indication: LUNG NEOPLASM MALIGNANT
     Dosage: 1000MG PER DAY
     Route: 048

REACTIONS (1)
  - PNEUMONIA BACTERIAL [None]
